FAERS Safety Report 10105622 (Version 2)
Quarter: 2014Q3

REPORT INFORMATION
  Report Type: Other
  Country: US (occurrence: US)
  Receive Date: 20140424
  Receipt Date: 20140715
  Transmission Date: 20150326
  Serious: Yes (Hospitalization, Other)
  Sender: FDA-Public Use
  Company Number: US-GSKPPD-2014GSK001018

PATIENT
  Age: 61 Year
  Sex: Female

DRUGS (4)
  1. AMIODARONE [Concomitant]
     Active Substance: AMIODARONE
  2. COZAAR [Concomitant]
     Active Substance: LOSARTAN POTASSIUM
  3. AVANDIA [Suspect]
     Active Substance: ROSIGLITAZONE MALEATE
     Indication: DIABETES MELLITUS
     Route: 048
     Dates: start: 2001, end: 2004
  4. POTASSIUM [Concomitant]
     Active Substance: POTASSIUM

REACTIONS (2)
  - Cardiac failure congestive [None]
  - Cerebrovascular accident [None]

NARRATIVE: CASE EVENT DATE: 20040221
